FAERS Safety Report 4344910-2 (Version None)
Quarter: 2004Q2

REPORT INFORMATION
  Report Type: 
  Country: None (occurrence: None)
  Receive Date: 20040421
  Receipt Date: 20040421
  Transmission Date: 20050107
  Serious: Yes (Hospitalization)
  Sender: FDA-Public Use
  Company Number: None

PATIENT
  Age: 72 Year
  Sex: Female
  Weight: 55.7924 kg

DRUGS (6)
  1. COUMADIN [Suspect]
     Indication: DEEP VEIN THROMBOSIS
     Dosage: DAILY PO
     Route: 048
     Dates: start: 20040224, end: 20040316
  2. CIPRO [Suspect]
     Indication: DEEP VEIN THROMBOSIS
     Dosage: 500 MG PO BID
     Route: 048
     Dates: start: 20040314, end: 20040322
  3. CIPRO [Concomitant]
  4. PREDNISONE [Concomitant]
  5. LOPRESSOR [Concomitant]
  6. VASOTEC [Concomitant]

REACTIONS (5)
  - BLOOD URINE [None]
  - COAGULOPATHY [None]
  - INTERNATIONAL NORMALISED RATIO INCREASED [None]
  - NEPHROLITHIASIS [None]
  - URINARY TRACT INFECTION [None]
